FAERS Safety Report 24173950 (Version 1)
Quarter: 2024Q3

REPORT INFORMATION
  Report Type: Report from Study
  Country: US (occurrence: US)
  Receive Date: 20240805
  Receipt Date: 20240805
  Transmission Date: 20241016
  Serious: Yes (Other)
  Sender: ROCHE
  Company Number: US-ROCHE-10000032733

PATIENT
  Sex: Female

DRUGS (11)
  1. CELLCEPT [Suspect]
     Active Substance: MYCOPHENOLATE MOFETIL
     Indication: End stage renal disease
     Route: 048
  2. APIXABAN [Concomitant]
     Active Substance: APIXABAN
  3. CEPHALEXIN [Concomitant]
     Active Substance: CEPHALEXIN
  4. ATENOLOL [Concomitant]
     Active Substance: ATENOLOL
  5. CETIRIZINE HCL [Concomitant]
     Active Substance: CETIRIZINE HYDROCHLORIDE
  6. JARDIANCE [Concomitant]
     Active Substance: EMPAGLIFLOZIN
  7. TACROLIMUS [Concomitant]
     Active Substance: TACROLIMUS
  8. PREDNISONE [Concomitant]
     Active Substance: PREDNISONE
  9. PROMETHAZINE [Concomitant]
     Active Substance: PROMETHAZINE HYDROCHLORIDE
  10. ONDANSETRON [Concomitant]
     Active Substance: ONDANSETRON
  11. OMEPRAZOLE [Concomitant]
     Active Substance: OMEPRAZOLE

REACTIONS (39)
  - Off label use [Unknown]
  - Headache [Unknown]
  - Craniocerebral injury [Unknown]
  - Tenosynovitis [Unknown]
  - Synovitis [Unknown]
  - Arthropathy [Unknown]
  - Hypertension [Unknown]
  - Type 2 diabetes mellitus [Unknown]
  - Abnormal weight gain [Unknown]
  - Cardiac failure [Unknown]
  - Arteriosclerosis coronary artery [Unknown]
  - Anaemia [Unknown]
  - Lymphadenitis [Unknown]
  - Anxiety disorder [Unknown]
  - Serous retinal detachment [Unknown]
  - Diabetic retinopathy [Unknown]
  - Osteoarthritis [Unknown]
  - Diabetic autonomic neuropathy [Unknown]
  - Clavicle fracture [Unknown]
  - Neoplasm [Unknown]
  - Gastrooesophageal reflux disease [Unknown]
  - Colitis [Unknown]
  - Type V hyperlipidaemia [Unknown]
  - Hyperparathyroidism [Unknown]
  - Insomnia [Unknown]
  - Localised oedema [Unknown]
  - Cystitis [Unknown]
  - Urinary tract infection [Unknown]
  - Constipation [Unknown]
  - Hyperthyroidism [Unknown]
  - Head injury [Unknown]
  - Limb injury [Unknown]
  - Pain in extremity [Unknown]
  - Obesity [Unknown]
  - Retinopathy [Unknown]
  - Sinus congestion [Unknown]
  - Contusion [Unknown]
  - Chronic kidney disease [Unknown]
  - Haematuria [Unknown]
